FAERS Safety Report 5837985-2 (Version None)
Quarter: 2008Q3

REPORT INFORMATION
  Report Type: 
  Country: None (occurrence: None)
  Receive Date: 20080808
  Receipt Date: 20080115
  Transmission Date: 20090109
  Serious: No
  Sender: FDA-Public Use
  Company Number: A0704399A

PATIENT
  Age: 59 Year
  Sex: Male

DRUGS (2)
  1. ANDRODERM [Suspect]
     Dosage: 5MG PER DAY
     Route: 062
     Dates: start: 20071206
  2. PAROXETINE HCL [Suspect]
     Indication: STRESS
     Dosage: 10MG PER DAY
     Route: 048
     Dates: start: 20071206

REACTIONS (1)
  - FATIGUE [None]
